FAERS Safety Report 18474387 (Version 3)
Quarter: 2021Q3

REPORT INFORMATION
  Report Type: Spontaneous
  Country: US (occurrence: US)
  Receive Date: 20201106
  Receipt Date: 20210804
  Transmission Date: 20211014
  Serious: Yes (Hospitalization, Other)
  Sender: FDA-Public Use
  Company Number: US-PFIZER INC-2019411300

PATIENT
  Age: 11 Year
  Sex: Male
  Weight: 49.9 kg

DRUGS (5)
  1. GENOTROPIN [Suspect]
     Active Substance: SOMATROPIN
     Dosage: 1.6 MG (1.6MG, 6 DAYS A WEEK)
     Dates: start: 20180203
  2. GENOTROPIN [Suspect]
     Active Substance: SOMATROPIN
     Dosage: 1.8 MG, DAILY
  3. GENOTROPIN [Suspect]
     Active Substance: SOMATROPIN
     Indication: SHORT STATURE
     Dosage: 12 MG, UNK
  4. GENOTROPIN [Suspect]
     Active Substance: SOMATROPIN
     Dosage: 1.7 MG (12MG CARTRIDGE/1.7MG 6 DAYS A WEEK)
     Dates: start: 20180203
  5. PROZAC [Concomitant]
     Active Substance: FLUOXETINE HYDROCHLORIDE
     Dosage: UNK

REACTIONS (6)
  - Injection site mass [Unknown]
  - Wrong technique in device usage process [Unknown]
  - Device leakage [Unknown]
  - Suicide attempt [Unknown]
  - Device breakage [Unknown]
  - Product prescribing error [Unknown]

NARRATIVE: CASE EVENT DATE: 20180203
